FAERS Safety Report 7351145-8 (Version None)
Quarter: 2011Q1

REPORT INFORMATION
  Report Type: 
  Country: None (occurrence: None)
  Receive Date: 20110304
  Receipt Date: 20110220
  Transmission Date: 20110831
  Serious: Yes (Hospitalization)
  Sender: FDA-Public Use
  Company Number: 024602

PATIENT
  Sex: Female
  Weight: 86.1 kg

DRUGS (15)
  1. PEPCID AC [Concomitant]
  2. PROTONIX [Concomitant]
  3. FOLIC ACID [Concomitant]
  4. PREDNISONE [Concomitant]
  5. BENADRYL [Concomitant]
  6. CYANOCOBALAMIN [Concomitant]
  7. RIFAMPIN [Concomitant]
  8. VITAMIN D [Concomitant]
  9. M.V.I. [Concomitant]
  10. VITAMINA D TRES BERENGUER [Concomitant]
  11. CIMZIA [Suspect]
     Indication: CROHN'S DISEASE
     Dosage: (SUBCUTANEOUS), (200 MG 1X/2 WEEKS, LYOPOLIZED SUBCUTANEOUS)
     Route: 058
     Dates: start: 20100930
  12. CIMZIA [Suspect]
     Indication: CROHN'S DISEASE
     Dosage: (SUBCUTANEOUS), (200 MG 1X/2 WEEKS, LYOPOLIZED SUBCUTANEOUS)
     Route: 058
     Dates: start: 20090902
  13. CALCITRIOL [Concomitant]
  14. IMODIUM /00384302/ [Concomitant]
  15. URSODIOL [Concomitant]

REACTIONS (3)
  - CLOSTRIDIAL INFECTION [None]
  - GASTROINTESTINAL BACTERIAL INFECTION [None]
  - DIARRHOEA [None]
